FAERS Safety Report 9402961 (Version 1)
Quarter: 2013Q3

REPORT INFORMATION
  Report Type: Report from Study
  Country: US (occurrence: US)
  Receive Date: 20130716
  Receipt Date: 20130716
  Transmission Date: 20140515
  Serious: Yes (Hospitalization)
  Sender: FDA-Public Use
  Company Number: US-JNJFOC-20130706336

PATIENT
  Age: 44 Year
  Sex: Male
  Weight: 88.45 kg

DRUGS (1)
  1. DURAGESIC [Suspect]
     Indication: PAIN
     Dosage: 100 UG/HR + 25 UG/HR
     Route: 062
     Dates: start: 2011

REACTIONS (7)
  - Fall [Recovered/Resolved]
  - Lower limb fracture [Recovered/Resolved]
  - Impaired healing [Not Recovered/Not Resolved]
  - Product packaging issue [Unknown]
  - Product quality issue [Unknown]
  - Drug dose omission [Recovered/Resolved]
  - Product quality issue [Unknown]
